FAERS Safety Report 8198292 (Version 2)
Quarter: 2012Q4

REPORT INFORMATION
  Report Type: Report from Study
  Country: US (occurrence: None)
  Receive Date: 20111005
  Receipt Date: 20120907
  Transmission Date: 20130627
  Serious: Yes (Hospitalization)
  Sender: FDA-Public Use
  Company Number: DAV-AE-MTX-11-049(01)

PATIENT
  Age: 65 Year
  Sex: Female
  Weight: 80 kg

DRUGS (14)
  1. METHOTREXATE [Suspect]
     Indication: RHEUMATOID ARTHRITIS
     Dosage: ORALLY
     Route: 048
     Dates: start: 20110414, end: 20110510
  2. HUMIRA(ADALIMUMAB) [Suspect]
     Indication: RHEUMATOID ARTHRITIS
     Route: 058
     Dates: start: 20110412, end: 20110510
  3. ZOLPIDEM (ZOLPIDEM) [Concomitant]
  4. MIRTAZAPINE (MIRTAZAPINE) [Concomitant]
  5. SIMVASTATIN (SIMVASTATIN) [Concomitant]
  6. ACETYLSALICYLIC ACID (ACETYLSALICYLIC ACID) [Concomitant]
  7. OLMESARTAN (OLMESARTAN) [Concomitant]
  8. HYDROCHLOROTHIAZIDE (HYDROCHLOROTHIAZIDE) [Concomitant]
  9. CARVEDILOL (CARVEDILOL) [Concomitant]
  10. FOLIC ACID (FOLIC ACID) [Concomitant]
  11. OMEPRAZOLE (OMEPRAZOLE) [Concomitant]
  12. CALCIUM (CALCIUM) [Concomitant]
  13. METFORMIN (METFORMIN) [Concomitant]
  14. CELECOXIB (CELECOXIB) [Concomitant]

REACTIONS (1)
  - Deep vein thrombosis [None]
